FAERS Safety Report 4984757-7 (Version None)
Quarter: 2006Q2

REPORT INFORMATION
  Report Type: 
  Country: None (occurrence: None)
  Receive Date: 20060427
  Receipt Date: 20060104
  Transmission Date: 20061013
  Serious: Yes (Hospitalization)
  Sender: FDA-Public Use
  Company Number: US-MERCK-0601USA00341

PATIENT
  Age: 66 Year
  Sex: Female
  Weight: 102 kg

DRUGS (5)
  1. VIOXX [Suspect]
     Indication: OSTEOARTHRITIS
     Route: 048
     Dates: start: 20010301, end: 20040801
  2. ASPIRIN [Concomitant]
     Indication: PAIN
     Route: 065
  3. ISOSORBIDE [Concomitant]
     Indication: ANGINA PECTORIS
     Route: 065
  4. TRIAM-A [Concomitant]
     Indication: ARTHRITIS
     Route: 065
  5. VIOXX [Suspect]
     Route: 048

REACTIONS (5)
  - CARDIAC FAILURE CONGESTIVE [None]
  - CHEST PAIN [None]
  - DEPRESSION [None]
  - HYPERTENSION [None]
  - INJURY [None]
